FAERS Safety Report 25331877 (Version 1)
Quarter: 2025Q2

REPORT INFORMATION
  Report Type: Spontaneous
  Country: US (occurrence: US)
  Receive Date: 20250519
  Receipt Date: 20250519
  Transmission Date: 20250717
  Serious: No
  Sender: Velzen Pharma
  Company Number: US-Velzen pharma pvt ltd-2176882

PATIENT
  Sex: Female

DRUGS (2)
  1. NIFEDIPINE [Suspect]
     Active Substance: NIFEDIPINE
     Indication: Pre-eclampsia
  2. LABETALOL [Concomitant]
     Active Substance: LABETALOL

REACTIONS (1)
  - Drug ineffective for unapproved indication [Unknown]
